FAERS Safety Report 5136865-8 (Version None)
Quarter: 2006Q4

REPORT INFORMATION
  Report Type: 
  Country: None (occurrence: None)
  Receive Date: 20061023
  Receipt Date: 20061009
  Transmission Date: 20070319
  Serious: Yes (Life-Threatening, Hospitalization, Disabling)
  Sender: FDA-Public Use
  Company Number: 2006108320

PATIENT
  Age: 83 Year
  Sex: Female

DRUGS (3)
  1. PREDNISOLONE [Suspect]
     Indication: POLYMYALGIA RHEUMATICA
     Dosage: 80 MG (5 MG, FREQUENCY: ONCE INTERVAL: EVERY OTHER DAY)
  2. FELODIPINE [Concomitant]
  3. URSODIOL [Concomitant]

REACTIONS (14)
  - ASPERGILLOSIS [None]
  - CORNEAL DISORDER [None]
  - CRANIAL NERVE PALSIES MULTIPLE [None]
  - EXOPHTHALMOS [None]
  - EYE INFECTION FUNGAL [None]
  - EYELID PTOSIS [None]
  - MASS [None]
  - NECROSIS [None]
  - OPTIC ATROPHY [None]
  - PUPILLARY REFLEX IMPAIRED [None]
  - SENSORY LOSS [None]
  - SINUS DISORDER [None]
  - SINUSITIS ASPERGILLUS [None]
  - TRIGEMINAL NERVE DISORDER [None]
